FAERS Safety Report 4315464-1 (Version None)
Quarter: 2004Q1

REPORT INFORMATION
  Report Type: 
  Country: None (occurrence: None)
  Receive Date: 20040310
  Receipt Date: 20040310
  Transmission Date: 20041129
  Serious: Yes (Hospitalization)
  Sender: FDA-Public Use
  Company Number: None

PATIENT
  Age: 56 Year
  Sex: Male
  Weight: 115.6672 kg

DRUGS (3)
  1. KINERET [Suspect]
     Indication: RHEUMATOID ARTHRITIS
     Dosage: DAILY 100 MG  SQ
     Route: 058
     Dates: start: 20020602
  2. METHOTREXATE [Suspect]
     Dosage: 6 TABS FRIDAYS
     Dates: start: 19950101
  3. ANTIHYPERTENSIVES [Concomitant]

REACTIONS (3)
  - CELLULITIS [None]
  - IMPAIRED WORK ABILITY [None]
  - OEDEMA PERIPHERAL [None]
